FAERS Safety Report 8919047 (Version 1)
Quarter: 2012Q4

REPORT INFORMATION
  Report Type: 
  Country: US (occurrence: US)
  Receive Date: 20121121
  Receipt Date: 20121121
  Transmission Date: 20130627
  Serious: No
  Sender: FDA-Public Use
  Company Number: US-ASTRAZENECA-2012SE24008

PATIENT
  Age: 58 Year
  Sex: Male

DRUGS (9)
  1. NEXIUM [Suspect]
     Indication: OESOPHAGITIS
     Route: 048
  2. SEROQUEL [Suspect]
     Route: 048
  3. SUCRALFATE [Concomitant]
     Indication: OESOPHAGITIS
  4. METFORMIN HCL [Concomitant]
     Indication: TYPE 2 DIABETES MELLITUS
  5. GLIMEPIRIDE [Concomitant]
     Indication: TYPE 2 DIABETES MELLITUS
  6. LYRICA [Concomitant]
     Indication: TYPE 2 DIABETES MELLITUS
  7. COLACE [Concomitant]
     Indication: CONSTIPATION
  8. NIFEDIPINE [Concomitant]
     Indication: ARTERIOSCLEROSIS CORONARY ARTERY
  9. HYDROCODONE-ACETAMINOPHEN [Concomitant]
     Indication: ILL-DEFINED DISORDER
     Dosage: 7.5/500 MG, 1 TABLET TWO TIMES A DAY

REACTIONS (3)
  - Arteriosclerosis coronary artery [Unknown]
  - Type 2 diabetes mellitus [Unknown]
  - Drug hypersensitivity [Unknown]
